FAERS Safety Report 21839190 (Version 1)
Quarter: 2023Q1

REPORT INFORMATION
  Report Type: Spontaneous
  Country: US (occurrence: US)
  Receive Date: 20230109
  Receipt Date: 20230109
  Transmission Date: 20230418
  Serious: No
  Sender: FDA-Public Use
  Company Number: US-GENERICUS, INC.-2022GNR00009

PATIENT
  Age: 65 Year
  Sex: Female
  Weight: 58.503 kg

DRUGS (2)
  1. TOBRAMYCIN [Suspect]
     Active Substance: TOBRAMYCIN
     Indication: Bronchiectasis
     Dosage: 300 MG/5 ML, 2X/DAY FOR 28 DAYS ON AND 28 DAYS OFF
     Dates: start: 20220602
  2. TOBRAMYCIN [Suspect]
     Active Substance: TOBRAMYCIN
     Indication: Infective exacerbation of bronchiectasis

REACTIONS (5)
  - Throat irritation [Not Recovered/Not Resolved]
  - Upper respiratory tract irritation [Not Recovered/Not Resolved]
  - Cough [Not Recovered/Not Resolved]
  - Off label use [Not Recovered/Not Resolved]
  - Product use issue [Not Recovered/Not Resolved]

NARRATIVE: CASE EVENT DATE: 20220601
